FAERS Safety Report 12423715 (Version 1)
Quarter: 2016Q2

REPORT INFORMATION
  Report Type: Spontaneous
  Country: US (occurrence: US)
  Receive Date: 20160601
  Receipt Date: 20160601
  Transmission Date: 20160815
  Serious: No
  Sender: FDA-Public Use
  Company Number: US-NOVEN PHARMACEUTICALS, INC.-US2015000842

PATIENT
  Age: 14 Year
  Sex: Female

DRUGS (6)
  1. DAYTRANA [Suspect]
     Active Substance: METHYLPHENIDATE
     Dosage: APPLYING TWO 30 MG PATCHES TOGETHER, UNK
     Route: 062
  2. DAYTRANA [Suspect]
     Active Substance: METHYLPHENIDATE
     Dosage: APPLYING ONE 30MG, ONE 10 MG AND ONE 15MG PATCH TOGETHER, UNKNOWN
     Route: 062
  3. CLONIDINE. [Concomitant]
     Active Substance: CLONIDINE
     Indication: ANXIETY
  4. DAYTRANA [Suspect]
     Active Substance: METHYLPHENIDATE
     Dosage: APPLYING 30MG AND ONE 10MG PATCH TOGETHER, UNKNOWN
     Route: 062
  5. CLONIDINE. [Concomitant]
     Active Substance: CLONIDINE
     Indication: SLEEP DISORDER
  6. DAYTRANA [Suspect]
     Active Substance: METHYLPHENIDATE
     Indication: ATTENTION DEFICIT/HYPERACTIVITY DISORDER
     Dosage: 30 MG, UNKNOWN
     Route: 062
     Dates: start: 2013

REACTIONS (5)
  - Drug prescribing error [Unknown]
  - Off label use [Unknown]
  - Insomnia [Unknown]
  - Wrong technique in product usage process [Unknown]
  - Overdose [Unknown]
